FAERS Safety Report 6540740-1 (Version None)
Quarter: 2010Q1

REPORT INFORMATION
  Report Type: 
  Country: None (occurrence: None)
  Receive Date: 20100118
  Receipt Date: 20100104
  Transmission Date: 20100710
  Serious: Yes (Hospitalization, Other)
  Sender: FDA-Public Use
  Company Number: BR-JNJFOC-20100105709

PATIENT
  Age: 59 Year
  Sex: Female
  Weight: 58 kg

DRUGS (4)
  1. TYLEX [Suspect]
     Indication: RIB FRACTURE
     Route: 065
  2. INSULIN [Concomitant]
     Indication: DIABETES MELLITUS
  3. GLIBENCLAMIDE [Concomitant]
     Indication: DIABETES MELLITUS
  4. METFORMIN HYDROCHLORIDE [Concomitant]
     Indication: DIABETES MELLITUS

REACTIONS (3)
  - BLISTER [None]
  - CHEST DISCOMFORT [None]
  - SWELLING FACE [None]
